FAERS Safety Report 9801442 (Version 3)
Quarter: 2014Q2

REPORT INFORMATION
  Report Type: Spontaneous
  Country: US (occurrence: US)
  Receive Date: 20140107
  Receipt Date: 20140626
  Transmission Date: 20141212
  Serious: Yes (Other)
  Sender: FDA-Public Use
  Company Number: US-PFIZER INC-2014003455

PATIENT
  Age: 54 Year
  Sex: Female
  Weight: 86 kg

DRUGS (6)
  1. LIPITOR [Suspect]
     Indication: LOW DENSITY LIPOPROTEIN INCREASED
     Dosage: 10 MG, DAILY
     Route: 048
     Dates: start: 2004, end: 201404
  2. LIPITOR [Suspect]
     Indication: CARDIOVASCULAR EVENT PROPHYLAXIS
  3. ESTRACE [Concomitant]
     Indication: HORMONE REPLACEMENT THERAPY
     Dosage: 2 MG, DAILY
     Dates: start: 1987
  4. ANTIVERT [Concomitant]
     Indication: MENIERE^S DISEASE
     Dosage: UNK
     Dates: start: 1999
  5. MECLOZINE [Concomitant]
     Indication: MENIERE^S DISEASE
     Dosage: UNK
     Dates: start: 1999
  6. TRIAMTERENE [Concomitant]
     Indication: MENIERE^S DISEASE
     Dosage: UNK
     Dates: start: 1999

REACTIONS (1)
  - Type 2 diabetes mellitus [Not Recovered/Not Resolved]
